FAERS Safety Report 6058976-5 (Version None)
Quarter: 2009Q1

REPORT INFORMATION
  Report Type: 
  Country: None (occurrence: None)
  Receive Date: 20090128
  Receipt Date: 20090128
  Transmission Date: 20090719
  Serious: Yes (Other)
  Sender: FDA-Public Use
  Company Number: None

PATIENT
  Age: 45 Year
  Sex: Male
  Weight: 108.8633 kg

DRUGS (3)
  1. GLUCOTROL [Suspect]
     Indication: TYPE 2 DIABETES MELLITUS
     Dosage: .05 MG 2 T X 2 DAILY PO
     Route: 048
     Dates: start: 20060101, end: 20090127
  2. CORGARD [Suspect]
     Indication: ARRHYTHMIA
     Dosage: 80 MG 1 T X 2 DAILY PO
     Route: 048
     Dates: start: 19740101
  3. CORGARD [Suspect]
     Indication: WOLFF-PARKINSON-WHITE SYNDROME
     Dosage: 80 MG 1 T X 2 DAILY PO
     Route: 048
     Dates: start: 19740101

REACTIONS (1)
  - TYPE 2 DIABETES MELLITUS [None]
